FAERS Safety Report 10926851 (Version 3)
Quarter: 2016Q2

REPORT INFORMATION
  Report Type: Report from Study
  Country: PT (occurrence: PT)
  Receive Date: 20150318
  Receipt Date: 20160506
  Transmission Date: 20160815
  Serious: Yes (Death, Other)
  Sender: FDA-Public Use
  Company Number: PT-BAYER-2015-037073

PATIENT
  Age: 83 Year
  Sex: Male

DRUGS (5)
  1. RADIUM-223 DICHLORIDE [Suspect]
     Active Substance: RADIUM RA-223 DICHLORIDE
     Indication: METASTASES TO BONE
     Dosage: 50BQ/KG
     Route: 042
     Dates: start: 2014, end: 201411
  2. RADIUM-223 DICHLORIDE [Suspect]
     Active Substance: RADIUM RA-223 DICHLORIDE
     Indication: PROSTATE CANCER METASTATIC
  3. ABIRATERONE [Concomitant]
     Active Substance: ABIRATERONE
  4. DENOSUMAB [Concomitant]
     Active Substance: DENOSUMAB
  5. DEXAMETHASONE. [Concomitant]
     Active Substance: DEXAMETHASONE

REACTIONS (2)
  - Metastases to meninges [Fatal]
  - Prostate cancer metastatic [Fatal]
